FAERS Safety Report 4803962-3 (Version None)
Quarter: 2005Q3

REPORT INFORMATION
  Report Type: 
  Country: None (occurrence: None)
  Receive Date: 20050920
  Receipt Date: 20020622
  Transmission Date: 20060218
  Serious: No
  Sender: FDA-Public Use
  Company Number: US-YAMANOUCHI-YPA20050340

PATIENT
  Age: 54 Year
  Sex: Male
  Weight: 79.3795 kg

DRUGS (7)
  1. VESICARE [Suspect]
     Indication: HYPERTONIC BLADDER
     Dosage: 5 MG QD PO
     Route: 048
     Dates: start: 20050401, end: 20050501
  2. VESICARE [Suspect]
     Indication: HYPERTONIC BLADDER
     Dosage: 10 MG QD PO
     Route: 048
     Dates: start: 20050501
  3. IMIPRAMINE [Suspect]
     Indication: HYPERTONIC BLADDER
     Dosage: 25 MG BID PO
     Route: 048
     Dates: start: 20050512, end: 20050616
  4. ATENOLOL [Concomitant]
  5. LIPITOR [Concomitant]
  6. ALLOPURINOL [Concomitant]
  7. CHOLCHICINE [Concomitant]

REACTIONS (5)
  - DRY MOUTH [None]
  - DYSPEPSIA [None]
  - ODYNOPHAGIA [None]
  - RASH PRURITIC [None]
  - STOMACH DISCOMFORT [None]
